FAERS Safety Report 17138029 (Version 1)
Quarter: 2019Q4

REPORT INFORMATION
  Report Type: Spontaneous
  Country: CN (occurrence: CN)
  Receive Date: 20191211
  Receipt Date: 20191211
  Transmission Date: 20200122
  Serious: Yes (Hospitalization)
  Sender: FDA-Public Use
  Company Number: CN-ROCHE-2488475

PATIENT
  Age: 29 Year
  Sex: Female
  Weight: 50.9 kg

DRUGS (10)
  1. METHYLPREDNISOLONE. [Concomitant]
     Active Substance: METHYLPREDNISOLONE
     Indication: SYSTEMIC SCLERODERMA
  2. CELLCEPT [Suspect]
     Active Substance: MYCOPHENOLATE MOFETIL\MYCOPHENOLATE MOFETIL HYDROCHLORIDE
     Indication: CHEILITIS
  3. CELLCEPT [Suspect]
     Active Substance: MYCOPHENOLATE MOFETIL\MYCOPHENOLATE MOFETIL HYDROCHLORIDE
     Indication: HEPATIC FUNCTION ABNORMAL
  4. PIRFENIDONE. [Concomitant]
     Active Substance: PIRFENIDONE
     Indication: SCLERODERMA
     Route: 048
  5. CELLCEPT [Suspect]
     Active Substance: MYCOPHENOLATE MOFETIL\MYCOPHENOLATE MOFETIL HYDROCHLORIDE
     Indication: SYSTEMIC SCLERODERMA
  6. METHYLPREDNISOLONE. [Concomitant]
     Active Substance: METHYLPREDNISOLONE
     Indication: HEPATIC FUNCTION ABNORMAL
  7. CELLCEPT [Suspect]
     Active Substance: MYCOPHENOLATE MOFETIL\MYCOPHENOLATE MOFETIL HYDROCHLORIDE
     Indication: INTERSTITIAL LUNG DISEASE
     Dosage: DF=PILL
     Route: 048
     Dates: start: 20161010
  8. METHYLPREDNISOLONE. [Concomitant]
     Active Substance: METHYLPREDNISOLONE
     Indication: INTERSTITIAL LUNG DISEASE
     Route: 048
     Dates: start: 20161010
  9. ACTEMRA [Suspect]
     Active Substance: TOCILIZUMAB
     Indication: SCLERODERMA
     Route: 041
     Dates: start: 20190901
  10. METHYLPREDNISOLONE. [Concomitant]
     Active Substance: METHYLPREDNISOLONE
     Indication: CHEILITIS

REACTIONS (6)
  - Asthenia [Unknown]
  - Oral disorder [Recovering/Resolving]
  - Hepatic function abnormal [Recovering/Resolving]
  - Off label use [Unknown]
  - Decreased appetite [Unknown]
  - Intentional product use issue [Unknown]

NARRATIVE: CASE EVENT DATE: 20190917
